FAERS Safety Report 10413428 (Version 2)
Quarter: 2014Q3

REPORT INFORMATION
  Report Type: Spontaneous
  Country: JP (occurrence: JP)
  Receive Date: 20140827
  Receipt Date: 20140908
  Transmission Date: 20150326
  Serious: Yes (Other)
  Sender: FDA-Public Use
  Company Number: JP-GLAXOSMITHKLINE-B1026106A

PATIENT
  Age: 56 Year
  Sex: Male

DRUGS (6)
  1. ENALAPRIL [Concomitant]
     Active Substance: ENALAPRIL
     Dosage: 5MG TWICE PER DAY
     Route: 048
     Dates: start: 20040417
  2. UNICON [Concomitant]
     Active Substance: THEOPHYLLINE
     Dosage: 200MG TWICE PER DAY
     Route: 048
     Dates: start: 19950412
  3. SINGULAIR [Concomitant]
     Active Substance: MONTELUKAST SODIUM
     Dosage: 10MG PER DAY
     Route: 048
     Dates: start: 20041009
  4. PERSANTINE [Concomitant]
     Active Substance: DIPYRIDAMOLE
     Dosage: 150MG PER DAY
     Route: 048
     Dates: start: 19950412
  5. ERYTHROCIN [Concomitant]
     Active Substance: ERYTHROMYCIN LACTOBIONATE
     Dosage: 200MG PER DAY
     Route: 048
     Dates: start: 20120421
  6. RELVAR ELLIPTA [Suspect]
     Active Substance: FLUTICASONE FUROATE\VILANTEROL TRIFENATATE
     Indication: ASTHMA
     Dosage: 200MCG PER DAY
     Route: 055
     Dates: start: 20140801

REACTIONS (5)
  - Productive cough [Unknown]
  - Cough [Unknown]
  - Asthma [Unknown]
  - Pneumonia [Recovering/Resolving]
  - Pyrexia [Unknown]

NARRATIVE: CASE EVENT DATE: 20140813
